FAERS Safety Report 17670064 (Version 1)
Quarter: 2020Q2

REPORT INFORMATION
  Report Type: Spontaneous
  Country: US (occurrence: US)
  Receive Date: 20200415
  Receipt Date: 20200415
  Transmission Date: 20200713
  Serious: Yes (Death, Other)
  Sender: FDA-Public Use
  Company Number: US-009507513-2004USA004070

PATIENT
  Age: 73 Year
  Sex: Male

DRUGS (1)
  1. INTRON A [Suspect]
     Active Substance: INTERFERON ALFA-2B
     Dosage: 1500000 UNITS, QOD, STRENGTH: 18MU MDV
     Route: 058
     Dates: start: 20191115

REACTIONS (1)
  - Death [Fatal]
